FAERS Safety Report 11690799 (Version 1)
Quarter: 2015Q4

REPORT INFORMATION
  Report Type: Spontaneous
  Country: GB (occurrence: GB)
  Receive Date: 20151102
  Receipt Date: 20151102
  Transmission Date: 20160304
  Serious: Yes (Hospitalization, Other)
  Sender: FDA-Public Use
  Company Number: GB-TEVA-604738ACC

PATIENT
  Age: 63 Year
  Sex: Male

DRUGS (9)
  1. HARVONI [Interacting]
     Active Substance: LEDIPASVIR\SOFOSBUVIR
     Indication: HEPATITIS C
     Dosage: 1 DOSAGE FORMS DAILY; DAILY DOSE: 1 DOSAGE FORMS, QD
     Route: 065
     Dates: start: 20150603, end: 20150826
  2. BISOPROLOL [Interacting]
     Active Substance: BISOPROLOL
  3. ASPIRIN. [Concomitant]
     Active Substance: ASPIRIN
  4. NICORANDIL [Concomitant]
     Active Substance: NICORANDIL
  5. ISOSORBIDE MONONITRATE. [Concomitant]
     Active Substance: ISOSORBIDE MONONITRATE
  6. LISINOPRIL. [Concomitant]
     Active Substance: LISINOPRIL
  7. LANSOPRAZOLE. [Concomitant]
     Active Substance: LANSOPRAZOLE
  8. BISOPROLOL [Interacting]
     Active Substance: BISOPROLOL
     Dosage: 10 MG, UNK
     Route: 065
     Dates: start: 201506
  9. BISOPROLOL [Suspect]
     Active Substance: BISOPROLOL
     Indication: PRODUCT USED FOR UNKNOWN INDICATION
     Dosage: 5 MG, UNK
     Route: 065

REACTIONS (4)
  - Presyncope [Recovered/Resolved]
  - Bradycardia [Recovered/Resolved]
  - Drug interaction [Recovered/Resolved]
  - Chest pain [Unknown]

NARRATIVE: CASE EVENT DATE: 20150827
